FAERS Safety Report 4876513-5 (Version None)
Quarter: 2006Q1

REPORT INFORMATION
  Report Type: 
  Country: None (occurrence: None)
  Receive Date: 20060110
  Receipt Date: 20060105
  Transmission Date: 20060701
  Serious: Yes (Other)
  Sender: FDA-Public Use
  Company Number: US-GLAXOSMITHKLINE-A0588039A

PATIENT
  Age: 38 Year
  Sex: Female

DRUGS (3)
  1. LEXIVA [Suspect]
     Indication: MEDICAL OBSERVATION
     Dosage: 2800MG PER DAY
     Route: 048
     Dates: start: 20051113, end: 20051211
  2. VIREAD [Suspect]
     Indication: MEDICAL OBSERVATION
     Dosage: 300MG PER DAY
     Route: 048
     Dates: start: 20051107, end: 20051211
  3. ALLEGRA [Concomitant]

REACTIONS (2)
  - ABDOMINAL PAIN [None]
  - ECTOPIC PREGNANCY [None]
